FAERS Safety Report 7674395 (Version 3)
Quarter: 2012Q4

REPORT INFORMATION
  Report Type: 
  Country: US (occurrence: US)
  Receive Date: 20101118
  Receipt Date: 20120925
  Transmission Date: 20130627
  Serious: Yes (Death)
  Sender: FDA-Public Use
  Company Number: US-MYLANLABS-2010S1020470

PATIENT
  Age: 48 Year
  Sex: Female
  Weight: 62.14 kg

DRUGS (10)
  1. FENTANYL TRANSDERMAL SYSTEM [Suspect]
     Indication: PAIN
     Dosage: change q3d
     Route: 062
     Dates: end: 20071114
  2. FENTANYL TRANSDERMAL SYSTEM [Suspect]
     Indication: PAIN
     Dosage: change q3d
     Route: 062
     Dates: end: 20071114
  3. CARBAMAZEPINE [Concomitant]
  4. TRAZODONE [Concomitant]
  5. PHENYTOIN SODIUM [Concomitant]
  6. TRAMADOL [Concomitant]
     Indication: PAIN
     Dosage: 50mg -100mg tid prn
     Route: 048
  7. ALBUTEROL [Concomitant]
     Route: 055
  8. ATROVENT [Concomitant]
     Route: 055
  9. BENZOYL PEROXIDE [Concomitant]
     Route: 061
  10. NICOTINE POLACRILEX [Concomitant]

REACTIONS (2)
  - Toxicity to various agents [Fatal]
  - Overdose [Fatal]
